FAERS Safety Report 5753669-3 (Version None)
Quarter: 2008Q2

REPORT INFORMATION
  Report Type: 
  Country: None (occurrence: None)
  Receive Date: 20080530
  Receipt Date: 20070205
  Transmission Date: 20081010
  Serious: Yes (Death)
  Sender: FDA-Public Use
  Company Number: JP-JNJFOC-20080506180

PATIENT

DRUGS (4)
  1. RISPERDAL [Suspect]
     Indication: DRUG USE FOR UNKNOWN INDICATION
     Route: 048
  2. LEVOTOMIN [Concomitant]
     Route: 048
  3. CHLORPROMAZINE HCL [Concomitant]
     Route: 048
  4. BIPERIDEN HYDROCHLORIDE TAB [Concomitant]
     Route: 048

REACTIONS (1)
  - CEREBRAL INFARCTION [None]
